FAERS Safety Report 12179300 (Version 1)
Quarter: 2016Q1

REPORT INFORMATION
  Report Type: Spontaneous
  Country: BR (occurrence: BR)
  Receive Date: 20160315
  Receipt Date: 20160315
  Transmission Date: 20160526
  Serious: Yes (Other)
  Sender: FDA-Public Use
  Company Number: BR-ELI_LILLY_AND_COMPANY-BR201603000334

PATIENT
  Sex: Female

DRUGS (3)
  1. HUMULIN N [Suspect]
     Active Substance: INSULIN HUMAN
     Indication: PRODUCT USED FOR UNKNOWN INDICATION
     Dosage: UNK, UNKNOWN
     Route: 058
  2. HUMULIN N [Suspect]
     Active Substance: INSULIN HUMAN
     Dosage: UNK, UNKNOWN
     Route: 058
  3. HUMULIN N [Suspect]
     Active Substance: INSULIN HUMAN
     Dosage: UNK, UNKNOWN
     Route: 058

REACTIONS (3)
  - Incorrect product storage [Unknown]
  - Visual impairment [Not Recovered/Not Resolved]
  - Nephrolithiasis [Not Recovered/Not Resolved]
